FAERS Safety Report 19936312 (Version 2)
Quarter: 2021Q4

REPORT INFORMATION
  Report Type: Spontaneous
  Country: US (occurrence: None)
  Receive Date: 20211008
  Receipt Date: 20211105
  Transmission Date: 20220303
  Serious: No
  Sender: FDA-Public Use
  Company Number: 2021A750204

PATIENT
  Age: 29 Year
  Sex: Male
  Weight: 65.8 kg

DRUGS (1)
  1. BUDESONIDE\FORMOTEROL\GLYCOPYRRONIUM [Suspect]
     Active Substance: BUDESONIDE\FORMOTEROL\GLYCOPYRRONIUM
     Dosage: 60MCG/9MCG/4.8MCG UNKNOWN
     Route: 055
     Dates: start: 2021

REACTIONS (3)
  - Bronchial hyperreactivity [Unknown]
  - Memory impairment [Unknown]
  - Wrong technique in product usage process [Unknown]

NARRATIVE: CASE EVENT DATE: 20210901
